FAERS Safety Report 19137725 (Version 5)
Quarter: 2022Q3

REPORT INFORMATION
  Report Type: Report from Study
  Country: US (occurrence: US)
  Receive Date: 20210414
  Receipt Date: 20220708
  Transmission Date: 20221027
  Serious: Yes (Other)
  Sender: FDA-Public Use
  Company Number: NVSC2021US081895

PATIENT
  Sex: Female

DRUGS (7)
  1. XIIDRA [Suspect]
     Active Substance: LIFITEGRAST
     Indication: Product used for unknown indication
     Dosage: UNK
     Route: 065
  2. XIIDRA [Suspect]
     Active Substance: LIFITEGRAST
     Dosage: 5 ML, Q2H
     Route: 047
     Dates: start: 20200310, end: 20220407
  3. XIIDRA [Suspect]
     Active Substance: LIFITEGRAST
     Dosage: 5 ML, BID
     Route: 047
     Dates: start: 20200310, end: 20220407
  4. PROMACTA [Suspect]
     Active Substance: ELTROMBOPAG OLAMINE
     Indication: Product used for unknown indication
     Dosage: 25 MG (TAKES IT AN HOUR BEFORE SHE)
     Route: 065
  5. PROMACTA [Suspect]
     Active Substance: ELTROMBOPAG OLAMINE
     Dosage: 50 MG, Q2H
     Route: 048
     Dates: start: 20190819, end: 20220608
  6. PROMACTA [Suspect]
     Active Substance: ELTROMBOPAG OLAMINE
     Dosage: 50 MG, QD
     Route: 048
     Dates: start: 20190819, end: 20220608
  7. PROMACTA [Suspect]
     Active Substance: ELTROMBOPAG OLAMINE
     Dosage: 25 MG
     Route: 065

REACTIONS (5)
  - Parkinson^s disease [Unknown]
  - Eye disorder [Unknown]
  - Product availability issue [Unknown]
  - Platelet count decreased [Recovered/Resolved]
  - Eye pain [Unknown]
